FAERS Safety Report 25734887 (Version 2)
Quarter: 2025Q3

REPORT INFORMATION
  Report Type: Spontaneous
  Country: US (occurrence: US)
  Receive Date: 20250828
  Receipt Date: 20250829
  Transmission Date: 20251020
  Serious: Yes (Death, Hospitalization, Other)
  Sender: GRAVITI PHARMACEUTICALS PRIVATE LIMITED
  Company Number: US-GRAVITIPHARMA-GRA-2508-US-LIT-0386

PATIENT
  Age: 48 Year
  Sex: Female

DRUGS (2)
  1. BUPROPION [Suspect]
     Active Substance: BUPROPION
     Indication: Product used for unknown indication
     Route: 065
  2. PROPRANOLOL [Suspect]
     Active Substance: PROPRANOLOL HYDROCHLORIDE
     Indication: Product used for unknown indication
     Route: 065

REACTIONS (8)
  - Cardiogenic shock [Fatal]
  - Ventricular tachycardia [Unknown]
  - Cardiotoxicity [Unknown]
  - Electrocardiogram QRS complex prolonged [Unknown]
  - Hypotension [Unknown]
  - Metabolic acidosis [Unknown]
  - Intentional product misuse [Unknown]
  - Overdose [Unknown]
